FAERS Safety Report 4316902-0 (Version None)
Quarter: 2004Q1

REPORT INFORMATION
  Report Type: 
  Country: None (occurrence: None)
  Receive Date: 20040312
  Receipt Date: 20040312
  Transmission Date: 20041129
  Serious: Yes (Hospitalization)
  Sender: FDA-Public Use
  Company Number: None

PATIENT
  Age: 71 Year
  Sex: Female
  Weight: 52.1637 kg

DRUGS (7)
  1. GEMCITABINE [Suspect]
     Indication: PANCREATIC CARCINOMA
     Dosage: GEMZAR 750MG/M2 IV
     Route: 042
     Dates: start: 20040308, end: 20040308
  2. CAPECITABINE [Suspect]
     Indication: PANCREATIC CARCINOMA
     Dosage: CAPECITANINE 750 MG/M2 PO BID
     Route: 048
     Dates: start: 20040308, end: 20040311
  3. OXYCONTIN [Concomitant]
  4. OXYCODONE [Concomitant]
  5. ZOFRAN [Concomitant]
  6. ATIVAN [Concomitant]
  7. VIT B6 [Concomitant]

REACTIONS (7)
  - DYSPNOEA [None]
  - MALIGNANT NEOPLASM PROGRESSION [None]
  - NAUSEA [None]
  - PAIN [None]
  - PANCREATIC CARCINOMA [None]
  - PLEURAL EFFUSION [None]
  - PULMONARY EMBOLISM [None]
